FAERS Safety Report 10220588 (Version 1)
Quarter: 2014Q2

REPORT INFORMATION
  Report Type: Spontaneous
  Country: NL (occurrence: NL)
  Receive Date: 20140606
  Receipt Date: 20140606
  Transmission Date: 20141212
  Serious: Yes (Hospitalization)
  Sender: FDA-Public Use
  Company Number: NL-ROCHE-1409177

PATIENT
  Age: 59 Year
  Sex: Female
  Weight: 77 kg

DRUGS (7)
  1. HERCEPTIN [Suspect]
     Indication: BREAST CANCER
     Dosage: EXTRA INFO: 1 KEER PER 3 WEKEN, DRUG REPORTED AS HERCEPTIN INJVLST 120MG/ML FLACON 5ML
     Route: 058
     Dates: start: 201405
  2. PANTOZOL (NETHERLANDS) [Concomitant]
     Dosage: 1 DD 1
     Route: 048
  3. SYMBICORT TURBUHALER [Concomitant]
     Dosage: DOSERING ONBEKEND, DRUG REPORTED AS ^SYMBICORT TURBUHALER INHALPDR 100/6MCG/DO  60DO^
     Route: 055
  4. FLIXONASE NASAL SPRAY [Concomitant]
     Dosage: DOSERING ONBEKEND, DRUG REPORTED AS ^FLIXONASE NEUSSPRAY 50MCG/DO FLACON 150DOSES^
     Route: 045
  5. CYMBALTA [Concomitant]
     Dosage: DOSERING ONBEKEND
     Route: 048
  6. ARCOXIA [Concomitant]
     Dosage: 1 DD 1
     Route: 048
  7. SIMVASTATINE [Concomitant]
     Dosage: 1 DD 1, DRUG REPORTED AS SIMVASTATINE CF TABLET FILMOMHULD 40MG
     Route: 048

REACTIONS (3)
  - Pain in extremity [Recovering/Resolving]
  - Condition aggravated [Unknown]
  - Back pain [Recovering/Resolving]
